FAERS Safety Report 4893096-4 (Version None)
Quarter: 2005Q4

REPORT INFORMATION
  Report Type: 
  Country: None (occurrence: None)
  Receive Date: 20051220
  Receipt Date: 20050415
  Transmission Date: 20060501
  Serious: Yes (Other)
  Sender: FDA-Public Use
  Company Number: PHEH2005US03794

PATIENT
  Age: 51 Year
  Sex: Female
  Weight: 69.8 kg

DRUGS (6)
  1. PAMIDRONATE DISODIUM [Suspect]
     Indication: OSTEOPOROSIS
     Dosage: 30 MG Q3MOS
     Dates: start: 20041221, end: 20050301
  2. GAMUNEX (IMMUNOGLOBULIN HUMAN NORMAL) [Concomitant]
  3. LIPITOR [Concomitant]
  4. CALCIUM (CALICUM) [Concomitant]
  5. ASPIRIN [Concomitant]
  6. GARLIC (ALLIUM SATIVUM) [Concomitant]

REACTIONS (3)
  - CELLULITIS [None]
  - INFLUENZA LIKE ILLNESS [None]
  - INJECTION SITE PHLEBITIS [None]
